FAERS Safety Report 9927839 (Version 1)
Quarter: 2014Q1

REPORT INFORMATION
  Report Type: Spontaneous
  Country: IT (occurrence: None)
  Receive Date: 20140221
  Receipt Date: 20140221
  Transmission Date: 20141002
  Serious: Yes (Other)
  Sender: FDA-Public Use
  Company Number: 2187460

PATIENT
  Age: 6 Year
  Sex: Female

DRUGS (7)
  1. (CYTARABINE) [Suspect]
     Indication: ACUTE LYMPHOCYTIC LEUKAEMIA
     Dosage: 75 MG MILLIGRAM(S) ( CYCLICAL
     Route: 058
     Dates: start: 20130506, end: 20130606
  2. ENDOXAN [Suspect]
     Indication: ACUTE LYMPHOCYTIC LEUKAEMIA
     Dosage: 1000 MG MILLIGRAM(S) ( CYCLICAL )?INTRAVENOUS (NOT OTHERWISE SPECIFIED)
     Route: 042
     Dates: start: 20130504, end: 20130611
  3. (PURINETHOL) [Suspect]
     Indication: ACUTE LYMPHOCYTIC LEUKAEMIA
     Dosage: 50 MG MILLIGRAM(S)  ?
     Route: 048
     Dates: start: 20130504, end: 20130513
  4. (MYCOSTATIN) [Concomitant]
  5. (BACTRIM) [Concomitant]
  6. (RANIDIL) [Concomitant]
  7. (DELTACORTENE) [Concomitant]

REACTIONS (2)
  - Neutropenia [None]
  - Leukopenia [None]
